FAERS Safety Report 18779498 (Version 1)
Quarter: 2021Q1

REPORT INFORMATION
  Report Type: Spontaneous
  Country: US (occurrence: US)
  Receive Date: 20210125
  Receipt Date: 20210125
  Transmission Date: 20210419
  Serious: No
  Sender: FDA-Public Use
  Company Number: US-AUROBINDO-AUR-APL-2020-055262

PATIENT
  Age: 73 Year
  Sex: Male
  Weight: 59.87 kg

DRUGS (4)
  1. MIRTAZAPINE ORALLY DISINTEGRATING TABLETS 45 MG [Suspect]
     Active Substance: MIRTAZAPINE
     Dosage: 45 MILLIGRAM, ONCE A DAY
     Route: 048
  2. PRAVASTATIN. [Concomitant]
     Active Substance: PRAVASTATIN
     Indication: PRODUCT USED FOR UNKNOWN INDICATION
     Dosage: UNK
     Route: 065
  3. IMBRUVICA [Concomitant]
     Active Substance: IBRUTINIB
     Indication: PRODUCT USED FOR UNKNOWN INDICATION
     Dosage: UNK
     Route: 065
  4. MIRTAZAPINE ORALLY DISINTEGRATING TABLETS 45 MG [Suspect]
     Active Substance: MIRTAZAPINE
     Indication: SLEEP DISORDER
     Dosage: 2 DOSAGE FORM, FROM EACH BOX (1 TABLET PER NIGHT)
     Route: 048
     Dates: start: 20201025

REACTIONS (1)
  - Drug ineffective [Unknown]
